FAERS Safety Report 10575215 (Version 1)
Quarter: 2014Q4

REPORT INFORMATION
  Report Type: Spontaneous
  Country: US (occurrence: US)
  Receive Date: 20141111
  Receipt Date: 20141111
  Transmission Date: 20150529
  Serious: Yes (Other)
  Sender: FDA-Public Use
  Company Number: US-CIPLA LTD.-2014US01628

PATIENT

DRUGS (4)
  1. DOXORUBICIN [Suspect]
     Active Substance: DOXORUBICIN
     Dosage: 20 MG/M2
  2. ZIDOVUDINE. [Suspect]
     Active Substance: ZIDOVUDINE
  3. VALGANCICLOVIR [Suspect]
     Active Substance: VALGANCICLOVIR
  4. RITUXIMAB [Suspect]
     Active Substance: RITUXIMAB
     Dosage: 375MG/M2

REACTIONS (1)
  - Disease progression [Unknown]
